FAERS Safety Report 5503545-6 (Version None)
Quarter: 2007Q4

REPORT INFORMATION
  Report Type: 
  Country: None (occurrence: None)
  Receive Date: 20071029
  Receipt Date: 20071017
  Transmission Date: 20080405
  Serious: Yes (Other)
  Sender: FDA-Public Use
  Company Number: GXKR2007ES08958

PATIENT
  Age: 49 Year
  Sex: Male

DRUGS (1)
  1. BUPROPION (NGX)(BUPROPIUM) UNKNOWN [Suspect]
     Indication: SMOKING CESSATION THERAPY
     Dosage: 300 MG, QD

REACTIONS (1)
  - PARKINSONISM [None]
